FAERS Safety Report 4318655-9 (Version None)
Quarter: 2004Q1

REPORT INFORMATION
  Report Type: 
  Country: None (occurrence: None)
  Receive Date: 20040315
  Receipt Date: 20040315
  Transmission Date: 20041129
  Serious: Yes (Death)
  Sender: FDA-Public Use
  Company Number: None

PATIENT
  Age: 66 Year
  Sex: Male
  Weight: 66.2252 kg

DRUGS (24)
  1. CISPLATIN [Suspect]
     Indication: OESOPHAGEAL CARCINOMA
     Dosage: 49 DAY CYCLE
     Dates: start: 20031124
  2. FLOXURIDINE [Suspect]
     Dosage: IV INFUSION VIAL PAC
     Route: 042
     Dates: start: 20040209
  3. TAXOL [Suspect]
  4. LV 500 MG/M2 [Suspect]
  5. EPOGEN [Concomitant]
  6. LOMOTIL [Concomitant]
  7. NEUPOGEN [Concomitant]
  8. ZANTAC [Concomitant]
  9. TOPICAL BENADRYL LOTION [Concomitant]
  10. MAGIC MIX SOLUTION [Concomitant]
  11. MEGACE [Concomitant]
  12. ANZEMET [Concomitant]
  13. TINCTURE OF OPIUM [Concomitant]
  14. TPN [Concomitant]
  15. HEPARIN [Concomitant]
  16. MEGESTROL [Concomitant]
  17. PANTOPRAZOLE [Concomitant]
  18. FILGRASTIN [Concomitant]
  19. BOOST PLUS [Concomitant]
  20. METOCLOPRAMIDE [Concomitant]
  21. KCL TAB [Concomitant]
  22. LASIX [Concomitant]
  23. DOPAMINE HCL [Concomitant]
  24. ADENOSINE [Concomitant]

REACTIONS (1)
  - NO ADVERSE DRUG EFFECT [None]
